FAERS Safety Report 9786775 (Version 1)
Quarter: 2013Q4

REPORT INFORMATION
  Report Type: Spontaneous
  Country: US (occurrence: US)
  Receive Date: 20131227
  Receipt Date: 20131227
  Transmission Date: 20140711
  Serious: No
  Sender: FDA-Public Use
  Company Number: US-BAXTER-2013BAX051378

PATIENT
  Age: 4 Year
  Sex: Female

DRUGS (4)
  1. POTASSIUM CHLORIDE IN SODIUM CHLORIDE [Suspect]
     Indication: PRODUCT USED FOR UNKNOWN INDICATION
     Route: 042
     Dates: start: 20131212
  2. DEXTROSE [Suspect]
     Indication: PRODUCT USED FOR UNKNOWN INDICATION
     Route: 042
     Dates: start: 20131212
  3. KETAMINE [Suspect]
     Indication: GASTROINTESTINAL TUBE INSERTION
     Route: 065
  4. DILAUDID [Suspect]
     Indication: PRODUCT USED FOR UNKNOWN INDICATION
     Route: 065
     Dates: start: 20131212

REACTIONS (5)
  - Device occlusion [Recovered/Resolved]
  - Device alarm issue [Unknown]
  - Device occlusion [Recovered/Resolved]
  - Drug administration error [Unknown]
  - No adverse event [Recovered/Resolved]
